FAERS Safety Report 9663710 (Version 1)
Quarter: 2013Q4

REPORT INFORMATION
  Report Type: Spontaneous
  Country: TR (occurrence: TR)
  Receive Date: 20131101
  Receipt Date: 20131101
  Transmission Date: 20140711
  Serious: Yes (Hospitalization, Other)
  Sender: FDA-Public Use
  Company Number: PHHY2013TR119408

PATIENT
  Age: 25 Year
  Sex: Female

DRUGS (4)
  1. CICLOSPORIN [Suspect]
  2. AZATHIOPRINE [Suspect]
  3. TACROLIMUS [Suspect]
  4. SIROLIMUS [Suspect]
     Dosage: 1 MG/KG, PER DAY

REACTIONS (6)
  - Coeliac disease [Recovered/Resolved]
  - Diarrhoea [Recovered/Resolved]
  - General physical health deterioration [Recovered/Resolved]
  - Symptom masked [Unknown]
  - Hodgkin^s disease [Unknown]
  - Drug ineffective [Unknown]
